FAERS Safety Report 8117996-7 (Version None)
Quarter: 2012Q1

REPORT INFORMATION
  Report Type: 
  Country: None (occurrence: None)
  Receive Date: 20120207
  Receipt Date: 20120201
  Transmission Date: 20120608
  Serious: Yes (Disabling, Other)
  Sender: FDA-Public Use
  Company Number: US-JNJFOC-20120201213

PATIENT
  Sex: Female

DRUGS (4)
  1. CONCERTA [Suspect]
     Indication: ATTENTION DEFICIT/HYPERACTIVITY DISORDER
     Route: 048
     Dates: end: 20110901
  2. CONCERTA [Suspect]
     Route: 048
  3. CONCERTA [Suspect]
     Route: 048
     Dates: start: 20110901, end: 20120101
  4. METHYLPHENIDATE HCL [Suspect]
     Indication: ATTENTION DEFICIT/HYPERACTIVITY DISORDER
     Route: 048
     Dates: start: 20120101, end: 20120101

REACTIONS (6)
  - ABNORMAL BEHAVIOUR [None]
  - HYPOACUSIS [None]
  - SEASONAL ALLERGY [None]
  - VISUAL ACUITY REDUCED [None]
  - ALLERGY TO ANIMAL [None]
  - MILK ALLERGY [None]
